FAERS Safety Report 11733232 (Version 1)
Quarter: 2015Q4

REPORT INFORMATION
  Report Type: Spontaneous
  Country: US (occurrence: US)
  Receive Date: 20151110
  Receipt Date: 20151110
  Transmission Date: 20160304
  Serious: No
  Sender: FDA-Public Use
  Company Number: US-ELI_LILLY_AND_COMPANY-US201205003744

PATIENT
  Sex: Female

DRUGS (2)
  1. FORTEO [Suspect]
     Active Substance: TERIPARATIDE
     Indication: OSTEOPOROSIS
     Dosage: UNK, QD
  2. FORTEO [Suspect]
     Active Substance: TERIPARATIDE
     Dosage: UNK, QD

REACTIONS (17)
  - Pain [Unknown]
  - Injection site nodule [Unknown]
  - Discomfort [Unknown]
  - Injection site pruritus [Unknown]
  - Injection site haemorrhage [Unknown]
  - Mass [Unknown]
  - Feeling hot [Unknown]
  - Injection site pain [Unknown]
  - Injection site bruising [Unknown]
  - Injection site erythema [Unknown]
  - Sleep disorder [Unknown]
  - Disorientation [Unknown]
  - Erythema [Unknown]
  - Fall [Recovered/Resolved]
  - Injection site swelling [Unknown]
  - Spinal fracture [Not Recovered/Not Resolved]
  - Balance disorder [Unknown]
